FAERS Safety Report 9579173 (Version 1)
Quarter: 2013Q4

REPORT INFORMATION
  Report Type: Spontaneous
  Country: US (occurrence: US)
  Receive Date: 20131001
  Receipt Date: 20131001
  Transmission Date: 20140711
  Serious: No
  Sender: FDA-Public Use
  Company Number: US-AMGEN-USASP2013016439

PATIENT
  Age: 37 Year
  Sex: Male
  Weight: 92.97 kg

DRUGS (6)
  1. ENBREL [Suspect]
     Indication: PSORIASIS
     Dosage: 50 MG, QWK
     Route: 058
  2. SINGULAIR [Concomitant]
     Dosage: 4 MG, UNK
  3. ZYRTEC [Concomitant]
     Dosage: 5 MG, UNK
  4. MINOCYCLINE [Concomitant]
     Dosage: 100 MG, UNK
  5. VITAMIN D3 [Concomitant]
     Dosage: 400 UNIT, UNK
  6. ONE A DAY MENS [Concomitant]
     Dosage: UNK

REACTIONS (1)
  - Injection site extravasation [Unknown]
